FAERS Safety Report 8715330 (Version 2)
Quarter: 2016Q1

REPORT INFORMATION
  Report Type: Spontaneous
  Country: US (occurrence: US)
  Receive Date: 20120809
  Receipt Date: 20160128
  Transmission Date: 20160526
  Serious: Yes (Hospitalization, Other)
  Sender: FDA-Public Use
  Company Number: US-GLAXOSMITHKLINE-A0899166A

PATIENT
  Sex: Male

DRUGS (1)
  1. AVANDIA [Suspect]
     Active Substance: ROSIGLITAZONE MALEATE
     Indication: DIABETES MELLITUS
     Dosage: 8 MG, QD
     Route: 048
     Dates: start: 200503, end: 200911

REACTIONS (9)
  - Chest pain [Recovering/Resolving]
  - Coronary artery disease [Recovering/Resolving]
  - Cerebrovascular accident [Recovering/Resolving]
  - Arteriosclerosis [Unknown]
  - Coeliac artery stenosis [Recovering/Resolving]
  - Peripheral artery stenosis [Recovering/Resolving]
  - Acute coronary syndrome [Unknown]
  - Carotid artery disease [Unknown]
  - Mesenteric artery stenosis [Recovering/Resolving]

NARRATIVE: CASE EVENT DATE: 2009
